FAERS Safety Report 18820256 (Version 2)
Quarter: 2021Q1

REPORT INFORMATION
  Report Type: Spontaneous
  Country: US (occurrence: US)
  Receive Date: 20210202
  Receipt Date: 20210210
  Transmission Date: 20210419
  Serious: No
  Sender: FDA-Public Use
  Company Number: US-ASTRAZENECA-2021A020659

PATIENT
  Sex: Female
  Weight: 92.1 kg

DRUGS (5)
  1. FARXIGA [Suspect]
     Active Substance: DAPAGLIFLOZIN PROPANEDIOL
     Indication: ATRIAL FIBRILLATION
     Route: 048
     Dates: end: 20210125
  2. FARXIGA [Suspect]
     Active Substance: DAPAGLIFLOZIN PROPANEDIOL
     Indication: ATRIAL FIBRILLATION
     Route: 048
     Dates: start: 20210115, end: 20210118
  3. FARXIGA [Suspect]
     Active Substance: DAPAGLIFLOZIN PROPANEDIOL
     Indication: BLOOD GLUCOSE INCREASED
     Route: 048
     Dates: end: 20210125
  4. ELIQUIS [Concomitant]
     Active Substance: APIXABAN
  5. FARXIGA [Suspect]
     Active Substance: DAPAGLIFLOZIN PROPANEDIOL
     Indication: BLOOD GLUCOSE INCREASED
     Route: 048
     Dates: start: 20210115, end: 20210118

REACTIONS (5)
  - Condition aggravated [Unknown]
  - Urticaria [Unknown]
  - Heart rate decreased [Unknown]
  - Hypersensitivity [Unknown]
  - Dyspnoea [Unknown]
